FAERS Safety Report 20875794 (Version 1)
Quarter: 2022Q2

REPORT INFORMATION
  Report Type: Spontaneous
  Country: US (occurrence: US)
  Receive Date: 20220526
  Receipt Date: 20220526
  Transmission Date: 20220721
  Serious: No
  Sender: FDA-Public Use
  Company Number: US-TEVA-2022-US-2033005

PATIENT
  Age: 75 Year
  Sex: Male

DRUGS (2)
  1. NEFAZODONE [Suspect]
     Active Substance: NEFAZODONE
     Route: 065
     Dates: start: 20220323
  2. NEFAZODONE [Suspect]
     Active Substance: NEFAZODONE
     Route: 065
     Dates: end: 2022

REACTIONS (1)
  - Drug effect less than expected [Unknown]

NARRATIVE: CASE EVENT DATE: 20220323
